FAERS Safety Report 9745451 (Version 1)
Quarter: 2013Q4

REPORT INFORMATION
  Report Type: Spontaneous
  Country: US (occurrence: None)
  Receive Date: 20131204
  Receipt Date: 20131204
  Transmission Date: 20140711
  Serious: Yes (Other)
  Sender: FDA-Public Use
  Company Number: FK201305165

PATIENT
  Age: 71 Year
  Sex: Female

DRUGS (9)
  1. GEMCITABINE [Suspect]
     Indication: BREAST NEOPLASM
  2. ASPIRIN (ACETYLSALICYLIC ACID) [Concomitant]
  3. FLUOXETINE HYDROCHLORIDE (FLUOXETINE HYDROCHLORIDE) [Concomitant]
  4. FUROSEMIDE (FUROSEMIDE) [Concomitant]
  5. GABAPENTIN (GABAPENTIN) [Concomitant]
  6. ZOLPIDEM TARTRATE (ZOLIPDEM TARTRATE) [Concomitant]
  7. LEVOTHYROXINE SODIUM (LEVOTHYROXINE SODIUM) [Concomitant]
  8. CALCIUM (CALCIUM) [Concomitant]
  9. CHOLECALCIFEROL (COLECALCIFEROL) [Concomitant]

REACTIONS (6)
  - Subacute cutaneous lupus erythematosus [None]
  - Globulins increased [None]
  - Platelet count increased [None]
  - Blood calcium decreased [None]
  - White blood cell count increased [None]
  - Blood urea nitrogen/creatinine ratio decreased [None]
